FAERS Safety Report 4276019-0 (Version None)
Quarter: 2004Q1

REPORT INFORMATION
  Report Type: 
  Country: None (occurrence: None)
  Receive Date: 20040121
  Receipt Date: 20030617
  Transmission Date: 20041129
  Serious: No
  Sender: FDA-Public Use
  Company Number: US-GLAXOSMITHKLINE-A0412684A

PATIENT
  Age: 83 Year
  Sex: Female

DRUGS (6)
  1. VALTREX [Suspect]
     Dosage: 1G THREE TIMES PER DAY
     Route: 048
     Dates: start: 20030616
  2. CAPOTEN [Concomitant]
     Route: 065
  3. TOPROL-XL [Concomitant]
     Route: 065
  4. LANOXIN [Concomitant]
     Route: 065
  5. NORVASC [Concomitant]
     Route: 065
  6. TRICOR [Concomitant]
     Route: 065

REACTIONS (2)
  - AURICULAR SWELLING [None]
  - SWELLING FACE [None]
